FAERS Safety Report 9983115 (Version 3)
Quarter: 2014Q2

REPORT INFORMATION
  Report Type: Spontaneous
  Country: JP (occurrence: JP)
  Receive Date: 20140307
  Receipt Date: 20140401
  Transmission Date: 20141212
  Serious: Yes (Hospitalization, Other)
  Sender: FDA-Public Use
  Company Number: JP-PFIZER INC-2014065340

PATIENT
  Age: 69 Year
  Sex: Male

DRUGS (1)
  1. GABAPEN [Suspect]
     Dosage: 800 MG, 1X/DAY
     Route: 048

REACTIONS (2)
  - Off label use [Unknown]
  - Lymphoma [Not Recovered/Not Resolved]
